FAERS Safety Report 5738643-5 (Version None)
Quarter: 2008Q2

REPORT INFORMATION
  Report Type: 
  Country: None (occurrence: None)
  Receive Date: 20080515
  Receipt Date: 20080512
  Transmission Date: 20081010
  Serious: Yes (Death, Other)
  Sender: FDA-Public Use
  Company Number: PHHY2008IT04497

PATIENT
  Age: 63 Year
  Sex: Male

DRUGS (1)
  1. SANDIMMUNE [Suspect]
     Indication: ECZEMA
     Dosage: 3 MG/KG DAILY
     Route: 048
     Dates: start: 20070310, end: 20071010

REACTIONS (4)
  - ANOREXIA [None]
  - DEATH [None]
  - DYSPNOEA [None]
  - SMALL CELL LUNG CANCER STAGE UNSPECIFIED [None]
